FAERS Safety Report 23017907 (Version 1)
Quarter: 2023Q4

REPORT INFORMATION
  Report Type: Spontaneous
  Country: ES (occurrence: ES)
  Receive Date: 20231003
  Receipt Date: 20231003
  Transmission Date: 20240110
  Serious: Yes (Death, Life-Threatening, Hospitalization, Other)
  Sender: FDA-Public Use
  Company Number: ES-MLMSERVICE-20230918-4550978-1

PATIENT
  Age: 13 Year
  Sex: Male

DRUGS (2)
  1. TACROLIMUS [Suspect]
     Active Substance: TACROLIMUS
     Indication: Immunosuppressant drug therapy
  2. ALEMTUZUMAB [Suspect]
     Active Substance: ALEMTUZUMAB
     Indication: Immunosuppressant drug therapy

REACTIONS (7)
  - Posterior reversible encephalopathy syndrome [Recovered/Resolved]
  - Pancreatitis acute [Fatal]
  - Post transplant lymphoproliferative disorder [Fatal]
  - Anuria [Fatal]
  - Respiratory failure [Fatal]
  - Non-Hodgkin^s lymphoma [Fatal]
  - Toxicity to various agents [Recovered/Resolved]
